FAERS Safety Report 7336992-0 (Version None)
Quarter: 2011Q1

REPORT INFORMATION
  Report Type: 
  Country: None (occurrence: None)
  Receive Date: 20110224
  Receipt Date: 20110209
  Transmission Date: 20110831
  Serious: Yes (Hospitalization)
  Sender: FDA-Public Use
  Company Number: 025204

PATIENT
  Sex: Female

DRUGS (11)
  1. CALCIUM OYSTER SHELL /00108001/ [Concomitant]
  2. OMEPRAZOLE [Concomitant]
  3. CALCARB /00108001/ [Concomitant]
  4. ALBUTEROL SULFATE [Concomitant]
  5. PERCOCET [Concomitant]
  6. LORAZEPAM [Concomitant]
  7. CIMZIA [Suspect]
     Indication: CROHN'S DISEASE
     Dosage: (400 MG 1X/4 WEEKS SUBCUTANEOUS)
     Route: 058
     Dates: start: 20101213
  8. FERROUS SULFATE TAB [Concomitant]
  9. MERCAPTOPURINE [Concomitant]
  10. VITAMIN D [Concomitant]
  11. PHENERGAN HCL [Concomitant]

REACTIONS (5)
  - FUNGAL OESOPHAGITIS [None]
  - ILEITIS [None]
  - CONSTIPATION [None]
  - SMALL INTESTINAL OBSTRUCTION [None]
  - GASTRIC MUCOSAL HYPERTROPHY [None]
